FAERS Safety Report 4834958-3 (Version None)
Quarter: 2005Q4

REPORT INFORMATION
  Report Type: 
  Country: None (occurrence: None)
  Receive Date: 20051122
  Receipt Date: 20051116
  Transmission Date: 20060501
  Serious: Yes (Hospitalization, Other)
  Sender: FDA-Public Use
  Company Number: BR-JNJFOC-20051104886

PATIENT
  Age: 2 Year
  Sex: Female
  Weight: 12 kg

DRUGS (2)
  1. HALDOL [Suspect]
     Route: 048
  2. CHLORPROMAZINE HCL [Suspect]
     Route: 048

REACTIONS (3)
  - ACCIDENTAL EXPOSURE [None]
  - SOPOR [None]
  - WHEEZING [None]
